FAERS Safety Report 7785665-9 (Version None)
Quarter: 2011Q3

REPORT INFORMATION
  Report Type: 
  Country: None (occurrence: None)
  Receive Date: 20110929
  Receipt Date: 20110929
  Transmission Date: 20111222
  Serious: Yes (Other)
  Sender: FDA-Public Use
  Company Number: None

PATIENT
  Sex: Female

DRUGS (1)
  1. RISPERDAL [Suspect]
     Dosage: ONE A DAY
     Route: 048

REACTIONS (6)
  - PHOTOPHOBIA [None]
  - ANAEMIA [None]
  - BRAIN INJURY [None]
  - GASTROOESOPHAGEAL REFLUX DISEASE [None]
  - HYPERACUSIS [None]
  - MIGRAINE [None]
